FAERS Safety Report 5427147-5 (Version None)
Quarter: 2007Q3

REPORT INFORMATION
  Report Type: 
  Country: None (occurrence: None)
  Receive Date: 20070828
  Receipt Date: 20070820
  Transmission Date: 20080115
  Serious: Yes (Hospitalization)
  Sender: FDA-Public Use
  Company Number: PHRM2007FR02052

PATIENT
  Age: 79 Year
  Sex: Male

DRUGS (9)
  1. TAREG [Suspect]
     Dosage: 160 MG, QD
     Route: 048
  2. ALDALIX [Suspect]
     Dosage: 1 DF, QD
     Route: 048
     Dates: end: 20070618
  3. CELECTOL [Concomitant]
     Dosage: 200 MG, BID
  4. PRAVASTATIN [Concomitant]
     Dosage: 40 MG, QD
  5. MONO-TILDIEM [Concomitant]
     Dosage: 30 MG, QD
  6. RENITEC [Suspect]
     Dosage: 20 MG, QD
     Route: 048
  7. GLUCOPHAGE [Concomitant]
     Dosage: 400 MG, QD
  8. ALLOPURINOL [Concomitant]
  9. LANTUS [Concomitant]

REACTIONS (12)
  - ASTHENIA [None]
  - BLOOD CREATININE INCREASED [None]
  - BLOOD UREA INCREASED [None]
  - BRADYCARDIA [None]
  - CHEST PAIN [None]
  - FIBRIN D DIMER INCREASED [None]
  - HAEMODIALYSIS [None]
  - HYPERKALAEMIA [None]
  - POLYURIA [None]
  - PULMONARY EMBOLISM [None]
  - RENAL FAILURE ACUTE [None]
  - RESPIRATORY DISORDER [None]
